FAERS Safety Report 11371735 (Version 2)
Quarter: 2015Q3

REPORT INFORMATION
  Report Type: Spontaneous
  Country: PT (occurrence: PT)
  Receive Date: 20150812
  Receipt Date: 20150817
  Transmission Date: 20151125
  Serious: Yes (Other)
  Sender: FDA-Public Use
  Company Number: PT-MYLANLABS-2015M1026140

PATIENT

DRUGS (5)
  1. SUPRALIP [Concomitant]
     Active Substance: FENOFIBRATE
     Indication: PRODUCT USED FOR UNKNOWN INDICATION
     Dosage: UNK
     Route: 065
  2. OMEPRAZOL MYLAN [Suspect]
     Active Substance: OMEPRAZOLE
     Indication: REFLUX GASTRITIS
     Dosage: 20 MG, QD
     Route: 048
     Dates: start: 1998
  3. PERMIXON [Concomitant]
     Active Substance: SAW PALMETTO
     Indication: BENIGN PROSTATIC HYPERPLASIA
     Dosage: UNK
     Route: 065
     Dates: start: 1994
  4. PRADIF [Concomitant]
     Indication: BENIGN PROSTATIC HYPERPLASIA
     Dosage: UNK
     Route: 065
     Dates: start: 1994
  5. OMEPRAZOL MYLAN [Suspect]
     Active Substance: OMEPRAZOLE
     Indication: HERNIA

REACTIONS (3)
  - Drug ineffective [Recovered/Resolved]
  - Dyspepsia [Recovered/Resolved]
  - Abdominal distension [Recovered/Resolved]
